FAERS Safety Report 8374175-6 (Version None)
Quarter: 2012Q2

REPORT INFORMATION
  Report Type: 
  Country: None (occurrence: None)
  Receive Date: 20120521
  Receipt Date: 20120504
  Transmission Date: 20120825
  Serious: Yes (Death, Life-Threatening, Hospitalization)
  Sender: FDA-Public Use
  Company Number: US-VIIV HEALTHCARE LIMITED-B0800462A

PATIENT
  Age: 41 Year
  Sex: Male
  Weight: 68.8 kg

DRUGS (7)
  1. IMODIUM [Concomitant]
     Route: 048
  2. ALBUTEROL [Concomitant]
     Indication: ASTHMA
     Route: 055
  3. ETRAVIRINE [Suspect]
     Indication: HIV INFECTION
     Dosage: 200MG TWICE PER DAY
     Route: 048
     Dates: start: 20100817
  4. MARAVIROC [Suspect]
     Indication: HIV INFECTION
     Dosage: 600MG TWICE PER DAY
     Route: 048
     Dates: start: 20100817
  5. LAMIVUDINE + ZIDOVUDINE [Suspect]
     Indication: HIV INFECTION
     Route: 048
     Dates: start: 20100817
  6. RALTEGRAVIR [Suspect]
     Indication: HIV INFECTION
     Dosage: 400MG TWICE PER DAY
     Route: 048
     Dates: start: 20100817
  7. MUCINEX [Concomitant]
     Indication: ILL-DEFINED DISORDER

REACTIONS (2)
  - MYOCARDIAL INFARCTION [None]
  - CARDIO-RESPIRATORY ARREST [None]
